FAERS Safety Report 10100661 (Version 1)
Quarter: 2014Q2

REPORT INFORMATION
  Report Type: Spontaneous
  Country: KR (occurrence: KR)
  Receive Date: 20140423
  Receipt Date: 20140423
  Transmission Date: 20141212
  Serious: Yes (Other)
  Sender: FDA-Public Use
  Company Number: KR-MYLANLABS-2014S1008514

PATIENT
  Age: 52 Year
  Sex: Female

DRUGS (2)
  1. PACLITAXEL [Suspect]
     Indication: OVARIAN EPITHELIAL CANCER
     Dosage: 175MG/M2; 8 CYCLES OF COMBINATION CHEMOTHERAPY
     Route: 065
  2. CARBOPLATIN [Suspect]
     Indication: OVARIAN EPITHELIAL CANCER
     Dosage: 400MG/M2; 8 CYCLES OF COMBINATION CHEMOTHERAPY
     Route: 065

REACTIONS (1)
  - Sarcoidosis [Recovering/Resolving]
